FAERS Safety Report 8360688-X (Version None)
Quarter: 2012Q2

REPORT INFORMATION
  Report Type: 
  Country: None (occurrence: None)
  Receive Date: 20120515
  Receipt Date: 20120507
  Transmission Date: 20120825
  Serious: Yes (Hospitalization)
  Sender: FDA-Public Use
  Company Number: US-ACTELION-A-NJ2012-59590

PATIENT

DRUGS (3)
  1. ASPIRIN [Concomitant]
  2. TRACLEER [Suspect]
     Indication: PULMONARY ARTERIAL HYPERTENSION
     Dosage: UNK
     Route: 048
     Dates: start: 20060101
  3. PROGRAF [Concomitant]

REACTIONS (6)
  - NASOPHARYNGITIS [None]
  - BRONCHITIS [None]
  - WHEEZING [None]
  - ASTHMA [None]
  - COUGH [None]
  - SEASONAL ALLERGY [None]
